FAERS Safety Report 6579387-X (Version None)
Quarter: 2010Q1

REPORT INFORMATION
  Report Type: 
  Country: None (occurrence: None)
  Receive Date: 20100209
  Receipt Date: 20100209
  Transmission Date: 20100710
  Serious: Yes (Hospitalization, Other)
  Sender: FDA-Public Use
  Company Number: None

PATIENT
  Age: 66 Year
  Sex: Male
  Weight: 147.5 kg

DRUGS (27)
  1. DAPTOMYCIN [Suspect]
     Indication: SEPSIS
     Dosage: 919.8 MG DAILY IV BOLUS
     Route: 040
     Dates: start: 20100122, end: 20100201
  2. ENOXAPARIN SODIUM [Suspect]
     Indication: PULMONARY EMBOLISM
     Dosage: 150MG TWICE DAILY SQ
     Route: 058
     Dates: start: 20100122, end: 20100201
  3. HOME MEDS: HYDROCODONE/APAP 5/500 [Concomitant]
  4. SIMVASTATIN [Concomitant]
  5. FUROSEMIDE [Concomitant]
  6. LEVOFLOXACIN [Concomitant]
  7. TRAMADOL [Concomitant]
  8. WARFARIN [Concomitant]
  9. INSULIN GLARGINE [Concomitant]
  10. LISINOPRIL [Concomitant]
  11. CARVEDILOL [Concomitant]
  12. FERROUS SULFATE TAB [Concomitant]
  13. ISOSORBIDE MONONITRATE [Concomitant]
  14. POTASSIUM CHLORIDE [Concomitant]
  15. ASCORBIC ACID [Concomitant]
  16. ESOMEPRAZOLE [Concomitant]
  17. INPATIENT MEDS: CARVEDILOL [Concomitant]
  18. ISOCORBIDE MONITRATE [Concomitant]
  19. CLOTRIMAZOLE [Concomitant]
  20. ESOMEPRAZOLE [Concomitant]
  21. FUROSEMIDE [Concomitant]
  22. INSULIN GLARGINE [Concomitant]
  23. INSULIN REGULAR SLIDING SCALE [Concomitant]
  24. LISINOPRIL [Concomitant]
  25. SENNOSIDES [Concomitant]
  26. SIMVASTATIN [Concomitant]
  27. WARFARIN [Concomitant]

REACTIONS (4)
  - DRUG LEVEL BELOW THERAPEUTIC [None]
  - EOSINOPHILIC PNEUMONIA [None]
  - HAEMOPTYSIS [None]
  - VASCULITIS [None]
